FAERS Safety Report 5110680-3 (Version None)
Quarter: 2006Q3

REPORT INFORMATION
  Report Type: 
  Country: None (occurrence: None)
  Receive Date: 20060919
  Receipt Date: 20060906
  Transmission Date: 20061208
  Serious: Yes (Other)
  Sender: FDA-Public Use
  Company Number: 14734

PATIENT
  Age: 60 Year

DRUGS (3)
  1. FLUOROURACIL [Suspect]
     Indication: COLON CANCER
  2. LEUCOVORIN CALCIUM [Suspect]
     Indication: COLON CANCER
  3. ELOXATIN [Suspect]
     Indication: COLON CANCER
     Dosage: 85 MG/M2 FORTNIGHTLY IV
     Route: 042

REACTIONS (1)
  - HEPATIC FUNCTION ABNORMAL [None]
